FAERS Safety Report 10024418 (Version 3)
Quarter: 2014Q2

REPORT INFORMATION
  Report Type: Spontaneous
  Country: US (occurrence: US)
  Receive Date: 20140320
  Receipt Date: 20140502
  Transmission Date: 20141212
  Serious: Yes (Hospitalization, Other)
  Sender: FDA-Public Use
  Company Number: US-PFIZER INC-2014062313

PATIENT
  Age: 77 Year
  Sex: Female
  Weight: 69 kg

DRUGS (5)
  1. TIKOSYN [Suspect]
     Indication: CARDIAC DISORDER
     Dosage: 0.25 MG, 2X/DAY
     Route: 048
     Dates: start: 2013
  2. TIKOSYN [Suspect]
     Indication: ATRIAL FIBRILLATION
  3. LISINOPRIL [Concomitant]
     Indication: HYPERTENSION
     Dosage: 10 MG, DAILY
  4. SIMVASTATIN [Concomitant]
     Dosage: 20 MG, UNK
  5. COUMADINE [Concomitant]
     Indication: BLOOD VISCOSITY INCREASED
     Dosage: UNK

REACTIONS (4)
  - Atrial fibrillation [Unknown]
  - Pain [Not Recovered/Not Resolved]
  - Small intestinal obstruction [Unknown]
  - Upper gastrointestinal haemorrhage [Recovered/Resolved]
